FAERS Safety Report 8842506 (Version 1)
Quarter: 2012Q4

REPORT INFORMATION
  Report Type: 
  Country: US (occurrence: US)
  Receive Date: 20121016
  Receipt Date: 20121016
  Transmission Date: 20130627
  Serious: Yes (Death)
  Sender: FDA-Public Use
  Company Number: US-ROCHE-1134350

PATIENT
  Sex: Male

DRUGS (4)
  1. XELODA [Suspect]
     Indication: BLADDER CANCER
     Route: 050
     Dates: start: 201106
  2. TAXOL [Concomitant]
  3. GEMZAR [Concomitant]
  4. CARBOPLATIN [Concomitant]

REACTIONS (1)
  - Death [Fatal]
